FAERS Safety Report 10076170 (Version 1)
Quarter: 2014Q2

REPORT INFORMATION
  Report Type: Spontaneous
  Country: US (occurrence: US)
  Receive Date: 20140414
  Receipt Date: 20140414
  Transmission Date: 20141212
  Serious: Yes (Hospitalization)
  Sender: FDA-Public Use
  Company Number: US-ELI_LILLY_AND_COMPANY-US201404001061

PATIENT
  Sex: Female

DRUGS (1)
  1. HUMATROPE [Suspect]
     Indication: GROWTH RETARDATION
     Dosage: 1.2 MG, UNKNOWN
     Route: 065
     Dates: start: 2013

REACTIONS (3)
  - Weight decreased [Unknown]
  - Fear of injection [Unknown]
  - Injection site pain [Unknown]
